FAERS Safety Report 7103582-4 (Version None)
Quarter: 2010Q4

REPORT INFORMATION
  Report Type: 
  Country: None (occurrence: None)
  Receive Date: 20101115
  Receipt Date: 20101103
  Transmission Date: 20110411
  Serious: Yes (Other)
  Sender: FDA-Public Use
  Company Number: GXKR2010GB12431

PATIENT
  Age: 52 Year
  Sex: Female
  Weight: 62.14 kg

DRUGS (1)
  1. SIMVASTATIN [Suspect]
     Dosage: 20 MG, UNK
     Route: 065
     Dates: start: 20100811

REACTIONS (4)
  - EYE PAIN [None]
  - LACRIMATION INCREASED [None]
  - OCULAR HYPERAEMIA [None]
  - VISION BLURRED [None]
